FAERS Safety Report 9441939 (Version 1)
Quarter: 2013Q3

REPORT INFORMATION
  Report Type: Spontaneous
  Country: CN (occurrence: None)
  Receive Date: 20130801
  Receipt Date: 20130801
  Transmission Date: 20140515
  Serious: Yes (Hospitalization)
  Sender: FDA-Public Use
  Company Number: IMP_06774_2013

PATIENT
  Age: 61 Year
  Sex: Male

DRUGS (1)
  1. METFORMIN (METFORMIN) [Suspect]
     Indication: PRODUCT USED FOR UNKNOWN INDICATION
     Dosage: (DF [NOT THE PRESCRIBED AMOUNT, OVER 20 GRAMS])

REACTIONS (11)
  - Renal failure acute [None]
  - Lactic acidosis [None]
  - Metabolic acidosis [None]
  - Continuous haemodiafiltration [None]
  - Altered state of consciousness [None]
  - Blood glucose increased [None]
  - Toxicity to various agents [None]
  - Suicide attempt [None]
  - Shock [None]
  - Drug level above therapeutic [None]
  - Incorrect dose administered [None]
